FAERS Safety Report 7539809-4 (Version None)
Quarter: 2011Q2

REPORT INFORMATION
  Report Type: 
  Country: None (occurrence: None)
  Receive Date: 20110610
  Receipt Date: 20110608
  Transmission Date: 20111010
  Serious: Yes (Death, Other)
  Sender: FDA-Public Use
  Company Number: PHHY2010MX71777

PATIENT
  Sex: Male

DRUGS (2)
  1. GLEEVEC [Suspect]
     Indication: ACUTE LYMPHOCYTIC LEUKAEMIA
     Dosage: 800 MG DAILY
     Route: 048
     Dates: start: 20100208
  2. GLEEVEC [Suspect]
     Indication: CHRONIC MYELOID LEUKAEMIA

REACTIONS (10)
  - DISEASE PROGRESSION [None]
  - NEUTROPENIA [None]
  - DIARRHOEA [None]
  - BLAST CRISIS IN MYELOGENOUS LEUKAEMIA [None]
  - CARDIAC ARREST [None]
  - SEPTIC SHOCK [None]
  - PYREXIA [None]
  - ANAEMIA [None]
  - DYSPNOEA [None]
  - THROMBOCYTOPENIA [None]
